FAERS Safety Report 7065412-9 (Version None)
Quarter: 2010Q4

REPORT INFORMATION
  Report Type: 
  Country: None (occurrence: None)
  Receive Date: 20101027
  Receipt Date: 20101021
  Transmission Date: 20110411
  Serious: Yes (Hospitalization)
  Sender: FDA-Public Use
  Company Number: FR-ROCHE-729469

PATIENT
  Sex: Female
  Weight: 49 kg

DRUGS (32)
  1. MYCOPHENOLATE MOFETIL [Suspect]
     Route: 048
     Dates: start: 20100511
  2. EVEROLIMUS [Suspect]
     Dosage: LAST DOSE PRIOR TO SAE: 23 SEP 2010
     Route: 048
     Dates: start: 20100516
  3. PREDNISONE [Suspect]
     Dosage: LAST DOSE PRIOR TO SAE: 8 SEP 2010
     Route: 048
     Dates: start: 20100518
  4. PREDNISONE [Suspect]
     Route: 048
     Dates: start: 20101002
  5. ROVALCYTE [Concomitant]
     Dosage: TEMPORARILY DISCONTINUED FROM 28 JUN TO 05 JULY 2010
     Route: 048
     Dates: start: 20100521, end: 20100628
  6. ROVALCYTE [Concomitant]
     Route: 048
     Dates: start: 20100706
  7. AMLODIPINE [Concomitant]
     Route: 048
     Dates: start: 20100517
  8. ELISOR [Concomitant]
     Route: 048
     Dates: start: 20100522
  9. PHOSPHONEUROS [Concomitant]
     Route: 048
     Dates: start: 20100525
  10. DIFFU K [Concomitant]
     Dosage: TDD: 6 DOSES
     Route: 048
     Dates: start: 20100626
  11. DIFFU K [Concomitant]
     Route: 048
     Dates: start: 20100628
  12. MAG 2 [Concomitant]
     Dosage: TDD: 2 DOSES
     Dates: start: 20100702
  13. INIPOMP [Concomitant]
     Route: 048
     Dates: start: 20100512
  14. INIPOMP [Concomitant]
     Route: 048
     Dates: start: 20100515
  15. BICARBONATE DE SODIUM [Concomitant]
     Route: 048
     Dates: start: 20100702
  16. BICARBONATE DE SODIUM [Concomitant]
     Route: 048
     Dates: start: 20100712
  17. INSULATARD [Concomitant]
     Dosage: TDD: 20+9 IU
     Dates: start: 20100703, end: 20100806
  18. NOVORAPID [Concomitant]
     Dosage: TDD: 8+8+8 IU
     Route: 058
     Dates: start: 20100628
  19. NOVORAPID [Concomitant]
     Route: 058
     Dates: start: 20100721, end: 20101001
  20. PIPERACILLIN AND TAZOBACTAM [Concomitant]
     Dates: start: 20100628, end: 20100719
  21. CIFLOX [Concomitant]
     Dates: start: 20100628, end: 20100718
  22. XYZAL [Concomitant]
     Route: 048
     Dates: start: 20100915, end: 20100929
  23. LANTUS [Concomitant]
     Dosage: TOTAL DAILY DOSE REPORTED AS 15 UI
     Route: 058
     Dates: start: 20100907, end: 20101001
  24. EPREX [Concomitant]
     Route: 058
     Dates: start: 20100803
  25. LEXOMIL [Concomitant]
     Route: 048
     Dates: start: 20100923
  26. PROGRAF [Concomitant]
     Route: 048
     Dates: start: 20100924
  27. NOVOMIX [Concomitant]
     Route: 058
     Dates: start: 20100811, end: 20100906
  28. MABTHERA [Concomitant]
     Dosage: FREQ: DAILY
     Route: 042
     Dates: start: 20100926, end: 20100926
  29. IMMUNE GLOBULIN IV NOS [Concomitant]
     Dosage: REPORTED AS: CLAIRYG FREQ: DAILY
     Route: 042
     Dates: start: 20100926, end: 20100928
  30. ROCEPHIN [Concomitant]
     Route: 042
     Dates: start: 20100928, end: 20101015
  31. GENTAMICIN [Concomitant]
     Route: 042
     Dates: start: 20100928, end: 20101002
  32. FORLAX [Concomitant]
     Route: 048
     Dates: start: 20101001

REACTIONS (2)
  - ESCHERICHIA SEPSIS [None]
  - TRANSPLANT REJECTION [None]
